FAERS Safety Report 6505353-6 (Version None)
Quarter: 2009Q4

REPORT INFORMATION
  Report Type: 
  Country: None (occurrence: None)
  Receive Date: 20091218
  Receipt Date: 20091211
  Transmission Date: 20100525
  Serious: Yes (Other)
  Sender: FDA-Public Use
  Company Number: DK-NOVOPROD-300486

PATIENT

DRUGS (7)
  1. LEVEMIR [Suspect]
     Indication: DRUG USE FOR UNKNOWN INDICATION
     Dosage: 50 IU DAILY SC AT GESTATIONAL WEEK 9
     Route: 064
  2. NOVORAPID [Suspect]
     Indication: DRUG USE FOR UNKNOWN INDICATION
     Dosage: 26 IU DAILY SC AT GESTATIONAL WEEK 9
     Route: 064
  3. METHYLDOPA [Concomitant]
     Route: 064
  4. TRANDATE [Concomitant]
     Route: 064
  5. ELTROXIN [Concomitant]
     Route: 064
  6. ADALAT [Concomitant]
     Route: 064
  7. CELESTON                           /00008501/ [Concomitant]
     Dosage: 24 MG
     Route: 064
     Dates: start: 20081104, end: 20081105

REACTIONS (2)
  - DRUG EXPOSURE DURING PREGNANCY [None]
  - PREMATURE BABY [None]
